FAERS Safety Report 26074684 (Version 1)
Quarter: 2025Q4

REPORT INFORMATION
  Report Type: Spontaneous
  Country: US (occurrence: US)
  Receive Date: 20251121
  Receipt Date: 20251121
  Transmission Date: 20260117
  Serious: Yes (Other)
  Sender: CHEPLAPHARM
  Company Number: US-ROCHE-10000428266

PATIENT
  Age: 56 Year
  Sex: Female
  Weight: 58.97 kg

DRUGS (13)
  1. CLONAZEPAM [Suspect]
     Active Substance: CLONAZEPAM
     Indication: Anxiety
     Dosage: TAKEN AT BEDTIME?DAILY DOSE: 2 MILLIGRAM
     Route: 048
     Dates: start: 2022
  2. OCREVUS [Suspect]
     Active Substance: OCRELIZUMAB
     Indication: Condition aggravated
     Dosage: 6 MONTH. HER LAST OCRELIZUMAB INFUSION ON 17-OCT-2025
     Route: 042
     Dates: start: 2022, end: 20251017
  3. OCREVUS [Suspect]
     Active Substance: OCRELIZUMAB
     Indication: Thrombosis
     Dosage: 6 MONTH. HER LAST OCRELIZUMAB INFUSION ON 17-OCT-2025
     Route: 042
     Dates: start: 2022, end: 20251017
  4. OCREVUS [Suspect]
     Active Substance: OCRELIZUMAB
     Indication: Injection site phlebitis
     Dosage: 6 MONTH. HER LAST OCRELIZUMAB INFUSION ON 17-OCT-2025
     Route: 042
     Dates: start: 2022, end: 20251017
  5. OCREVUS [Suspect]
     Active Substance: OCRELIZUMAB
     Indication: Product preparation issue
     Dosage: 6 MONTH. HER LAST OCRELIZUMAB INFUSION ON 17-OCT-2025
     Route: 042
     Dates: start: 2022, end: 20251017
  6. OCREVUS [Suspect]
     Active Substance: OCRELIZUMAB
     Indication: Relapsing-remitting multiple sclerosis
     Dosage: 6 MONTH. HER LAST OCRELIZUMAB INFUSION ON 17-OCT-2025
     Route: 042
     Dates: start: 2022, end: 20251017
  7. OCREVUS [Suspect]
     Active Substance: OCRELIZUMAB
     Indication: Injection site pain
     Dosage: 6 MONTH. HER LAST OCRELIZUMAB INFUSION ON 17-OCT-2025
     Route: 042
     Dates: start: 2022, end: 20251017
  8. PREDNISOLONE [Concomitant]
     Active Substance: PREDNISOLONE
     Indication: Ophthalmic herpes zoster
     Dosage: 1% DROP - ADMINISTERED IN RIGHT EYE, 0.5 DAY
     Dates: start: 2022
  9. VITAMIN D [Concomitant]
     Active Substance: VITAMIN D NOS
     Indication: Vitamin D deficiency
     Dosage: GEL TABLET, DOSE IS 5000 BTU
     Route: 048
     Dates: start: 2015
  10. VITAMIN B12 [Concomitant]
     Active Substance: CYANOCOBALAMIN
     Indication: Vitamin B complex deficiency
     Dosage: INJECTED IN THE MUSCLE OF ARM, 1 MONTH
     Route: 030
     Dates: start: 2025
  11. TOPAMAX [Concomitant]
     Active Substance: TOPIRAMATE
     Indication: Migraine
     Dosage: TAKEN EVERY NIGHT, PILL?DAILY DOSE: 100 MILLIGRAM
     Route: 048
  12. TOPAMAX [Concomitant]
     Active Substance: TOPIRAMATE
     Indication: Insomnia
     Dosage: TAKEN EVERY NIGHT, PILL?DAILY DOSE: 100 MILLIGRAM
     Route: 048
  13. VALTREX [Concomitant]
     Active Substance: VALACYCLOVIR HYDROCHLORIDE
     Indication: Ophthalmic herpes zoster
     Dosage: PILL 1 GM ONCE A DAY?DAILY DOSE: 1 GRAM
     Route: 048
     Dates: start: 2022

REACTIONS (4)
  - Multiple sclerosis relapse [Recovered/Resolved]
  - Back pain [Not Recovered/Not Resolved]
  - Vitamin B complex deficiency [Not Recovered/Not Resolved]
  - Pain in extremity [Unknown]

NARRATIVE: CASE EVENT DATE: 20250101
